FAERS Safety Report 10426883 (Version 1)
Quarter: 2014Q3

REPORT INFORMATION
  Report Type: Spontaneous
  Country: US (occurrence: None)
  Receive Date: 20140902
  Receipt Date: 20140902
  Transmission Date: 20150326
  Serious: Yes (Other)
  Sender: FDA-Public Use
  Company Number: None

PATIENT
  Age: 53 Year
  Sex: Male
  Weight: 74.84 kg

DRUGS (2)
  1. SEROQUEL [Suspect]
     Active Substance: QUETIAPINE FUMARATE
     Indication: PRODUCT USED FOR UNKNOWN INDICATION
     Dosage: 2 PILLS PER DAY?, TWICE DAILY, TAKEN BY MOUTH
     Route: 048
     Dates: start: 20110101, end: 20140830
  2. QUETIAPINE 100 MG LUPIN PHARMACEUTICALS [Suspect]
     Active Substance: QUETIAPINE
     Indication: PRODUCT USED FOR UNKNOWN INDICATION
     Dosage: (2) 50 MG., AT BEDTIME, TAKEN BY MOUTH
     Route: 048
     Dates: start: 20140115, end: 20140131

REACTIONS (9)
  - Overdose [None]
  - Fatigue [None]
  - Road traffic accident [None]
  - Joint injury [None]
  - Victim of crime [None]
  - Walking aid user [None]
  - Somnolence [None]
  - Impaired healing [None]
  - Loss of consciousness [None]

NARRATIVE: CASE EVENT DATE: 20140128
